FAERS Safety Report 25589923 (Version 1)
Quarter: 2025Q3

REPORT INFORMATION
  Report Type: Spontaneous
  Country: EU (occurrence: EU)
  Receive Date: 20250722
  Receipt Date: 20250722
  Transmission Date: 20251020
  Serious: Yes (Hospitalization)
  Sender: AMGEN
  Company Number: EU-002147023-NVSC2025DE114995

PATIENT
  Sex: Female

DRUGS (1)
  1. AIMOVIG [Suspect]
     Active Substance: ERENUMAB-AOOE
     Indication: Migraine prophylaxis
     Route: 065

REACTIONS (5)
  - Ileus [Unknown]
  - Appendicitis [Unknown]
  - Constipation [Unknown]
  - Faeces hard [Unknown]
  - Migraine [Unknown]
